FAERS Safety Report 13067549 (Version 1)
Quarter: 2016Q4

REPORT INFORMATION
  Report Type: Spontaneous
  Country: US (occurrence: US)
  Receive Date: 20161228
  Receipt Date: 20161228
  Transmission Date: 20170207
  Serious: Yes (Other)
  Sender: FDA-Public Use
  Company Number: US-BEH-2016076621

PATIENT
  Sex: Female
  Weight: 71.7 kg

DRUGS (33)
  1. PRIVIGEN [Suspect]
     Active Substance: HUMAN IMMUNOGLOBULIN G
     Indication: PRODUCT USED FOR UNKNOWN INDICATION
     Dosage: 30 G, BIW
     Route: 042
     Dates: start: 20150521
  2. TRAMADOL. [Concomitant]
     Active Substance: TRAMADOL
  3. CALCIUM CITRATE [Concomitant]
     Active Substance: CALCIUM CITRATE
  4. PROBIOTIC                          /06395501/ [Concomitant]
     Active Substance: BIFIDOBACTERIUM ANIMALIS SUBSP. LACTIS
  5. ACETAMINOPHEN. [Concomitant]
     Active Substance: ACETAMINOPHEN
  6. REFRESH P.M. [Concomitant]
     Active Substance: MINERAL OIL\PETROLATUM
  7. VENLAFAXINE [Concomitant]
     Active Substance: VENLAFAXINE HYDROCHLORIDE
  8. METROGEL [Concomitant]
     Active Substance: METRONIDAZOLE
  9. IMURAN [Concomitant]
     Active Substance: AZATHIOPRINE
  10. ELIDEL [Concomitant]
     Active Substance: PIMECROLIMUS
  11. METANX [Concomitant]
     Active Substance: LEVOMEFOLATE CALCIUM\METHYLCOBALAMIN\PYRIDOXAL PHOSPHATE ANHYDROUS
  12. SODIUM CHLORIDE. [Concomitant]
     Active Substance: SODIUM CHLORIDE
  13. PRAVASTATIN. [Concomitant]
     Active Substance: PRAVASTATIN
  14. BUSPIRONE [Concomitant]
     Active Substance: BUSPIRONE HYDROCHLORIDE
  15. PROMETHAZINE [Concomitant]
     Active Substance: PROMETHAZINE\PROMETHAZINE HYDROCHLORIDE
  16. BACTRIM DS [Concomitant]
     Active Substance: SULFAMETHOXAZOLE\TRIMETHOPRIM
  17. CALCIUM+VITAMIN D3 [Concomitant]
  18. DEXTROSE. [Concomitant]
     Active Substance: DEXTROSE
  19. EPIPEN [Concomitant]
     Active Substance: EPINEPHRINE
  20. SYSTANE (HYPROMELLOSE 2910 (4000 MPA.S)) [Concomitant]
     Active Substance: HYPROMELLOSE 2910 (4000 MPA.S)
  21. MESTINON [Concomitant]
     Active Substance: PYRIDOSTIGMINE BROMIDE
  22. MULTIVITAMINS [Concomitant]
     Active Substance: VITAMINS
  23. DIPHENHYDRAMINE. [Concomitant]
     Active Substance: DIPHENHYDRAMINE
  24. LMX                                /00033401/ [Concomitant]
  25. BIOTIN [Concomitant]
     Active Substance: BIOTIN
  26. CELLCEPT [Concomitant]
     Active Substance: MYCOPHENOLATE MOFETIL\MYCOPHENOLATE MOFETIL HYDROCHLORIDE
  27. NEURONTIN [Concomitant]
     Active Substance: GABAPENTIN
  28. ZOFRAN [Concomitant]
     Active Substance: ONDANSETRON HYDROCHLORIDE
  29. PRIVIGEN [Suspect]
     Active Substance: HUMAN IMMUNOGLOBULIN G
     Dosage: UNK
     Route: 042
  30. HEPARIN [Concomitant]
     Active Substance: HEPARIN SODIUM
  31. DEPAKOTE [Concomitant]
     Active Substance: DIVALPROEX SODIUM
  32. TRAZODONE [Concomitant]
     Active Substance: TRAZODONE HYDROCHLORIDE
  33. NORCO [Concomitant]
     Active Substance: ACETAMINOPHEN\HYDROCODONE BITARTRATE

REACTIONS (1)
  - Thrombophlebitis septic [Unknown]
